FAERS Safety Report 12325355 (Version 2)
Quarter: 2016Q3

REPORT INFORMATION
  Report Type: Spontaneous
  Country: US (occurrence: US)
  Receive Date: 20160502
  Receipt Date: 20160816
  Transmission Date: 20161109
  Serious: No
  Sender: FDA-Public Use
  Company Number: US-009507513-1604USA012269

PATIENT
  Sex: Male

DRUGS (1)
  1. ASMANEX [Suspect]
     Active Substance: MOMETASONE FUROATE
     Dosage: TOTAL DAILY DOSE 220 MICROGRAM
     Route: 055

REACTIONS (3)
  - Product impurity [Unknown]
  - No adverse event [Unknown]
  - Drug dose omission [Recovered/Resolved]
